APPROVED DRUG PRODUCT: KYTRIL
Active Ingredient: GRANISETRON HYDROCHLORIDE
Strength: EQ 2MG BASE **Federal Register determination that product was not withdrawn or discontinued for safety or effectiveness reasons**
Dosage Form/Route: TABLET;ORAL
Application: N020305 | Product #002
Applicant: HOFFMANN LA ROCHE INC
Approved: Jun 15, 1998 | RLD: Yes | RS: No | Type: DISCN